FAERS Safety Report 22373581 (Version 1)
Quarter: 2023Q2

REPORT INFORMATION
  Report Type: Spontaneous
  Country: US (occurrence: None)
  Receive Date: 20230526
  Receipt Date: 20230526
  Transmission Date: 20230721
  Serious: Yes (Hospitalization)
  Sender: FDA-Public Use
  Company Number: None

PATIENT
  Age: 63 Year
  Sex: Male
  Weight: 104.33 kg

DRUGS (3)
  1. ODOMZO [Suspect]
     Active Substance: SONIDEGIB
     Indication: Basal cell carcinoma
     Dosage: OTHER FREQUENCY : 1 HR BEFORE OR 2 H;?
     Route: 048
     Dates: start: 202305
  2. ODOMZO [Suspect]
     Active Substance: SONIDEGIB
     Indication: Carcinoma in situ of skin
  3. ODOMZO [Suspect]
     Active Substance: SONIDEGIB
     Indication: Carcinoma in situ of skin

REACTIONS (1)
  - Renal failure [None]
